FAERS Safety Report 5359961-9 (Version None)
Quarter: 2007Q2

REPORT INFORMATION
  Report Type: 
  Country: None (occurrence: None)
  Receive Date: 20070617
  Receipt Date: 20070605
  Transmission Date: 20071010
  Serious: Yes (Hospitalization)
  Sender: FDA-Public Use
  Company Number: JP-JNJFOC-20070502365

PATIENT
  Sex: Female
  Weight: 35 kg

DRUGS (4)
  1. REMICADE [Suspect]
     Route: 042
  2. REMICADE [Suspect]
     Indication: RHEUMATOID ARTHRITIS
     Route: 042
  3. RHEUMATREX [Suspect]
     Route: 048
  4. RHEUMATREX [Suspect]
     Indication: RHEUMATOID ARTHRITIS
     Route: 048

REACTIONS (4)
  - ENTEROCOLITIS [None]
  - ILEUS PARALYTIC [None]
  - PANCYTOPENIA [None]
  - PNEUMONIA [None]
